FAERS Safety Report 19433221 (Version 3)
Quarter: 2021Q4

REPORT INFORMATION
  Report Type: Report from Study
  Country: FR (occurrence: FR)
  Receive Date: 20210617
  Receipt Date: 20211130
  Transmission Date: 20220303
  Serious: Yes (Other)
  Sender: FDA-Public Use
  Company Number: FR-TAKEDA-2021TUS033801

PATIENT
  Sex: Female
  Weight: 40 kg

DRUGS (3)
  1. IXAZOMIB [Suspect]
     Active Substance: IXAZOMIB
     Indication: Plasma cell myeloma
     Dosage: UNK
     Route: 065
  2. DARATUMUMAB [Suspect]
     Active Substance: DARATUMUMAB
     Indication: Plasma cell myeloma
     Dosage: 640 MILLIGRAM
     Route: 042
     Dates: start: 20210211, end: 20210419
  3. DARATUMUMAB [Suspect]
     Active Substance: DARATUMUMAB
     Dosage: UNK
     Route: 065
     Dates: start: 20210614

REACTIONS (2)
  - Hip fracture [Recovered/Resolved]
  - Skin ulcer [Recovered/Resolved]

NARRATIVE: CASE EVENT DATE: 20210215
